FAERS Safety Report 8620901-8 (Version None)
Quarter: 2012Q3

REPORT INFORMATION
  Report Type: 
  Country: None (occurrence: None)
  Receive Date: 20120824
  Receipt Date: 20120815
  Transmission Date: 20120928
  Serious: Yes (Other)
  Sender: FDA-Public Use
  Company Number: CHPA2012US017042

PATIENT
  Age: 81 Year
  Sex: Female

DRUGS (2)
  1. EXCEDRIN TENSION HEADACHE CAPLETS [Suspect]
     Indication: MIGRAINE
     Dosage: 4 DF, QD
     Route: 048
     Dates: start: 19870101, end: 20120101
  2. SYNTHROID [Concomitant]
     Dosage: UNK, UNK
     Route: 048
     Dates: start: 20111001

REACTIONS (5)
  - HIP FRACTURE [None]
  - HAIR TEXTURE ABNORMAL [None]
  - PAIN [None]
  - NIGHTMARE [None]
  - INCORRECT DRUG ADMINISTRATION DURATION [None]
